FAERS Safety Report 9745095 (Version 2)
Quarter: 2014Q1

REPORT INFORMATION
  Report Type: Spontaneous
  Country: FR (occurrence: FR)
  Receive Date: 20131211
  Receipt Date: 20140130
  Transmission Date: 20141002
  Serious: Yes (Other)
  Sender: FDA-Public Use
  Company Number: FR-ASTRAZENECA-2013SE88994

PATIENT
  Age: 53 Year
  Sex: Female
  Weight: 56 kg

DRUGS (6)
  1. INEXIUM [Suspect]
     Indication: GASTROOESOPHAGEAL REFLUX DISEASE
     Route: 048
     Dates: start: 201211, end: 20131203
  2. NOVONORM [Concomitant]
     Indication: DIABETES MELLITUS
     Dosage: 0 TO 2 MG EVERY DAY
     Dates: start: 201211
  3. GLUCOPHAGE [Concomitant]
     Indication: DIABETES MELLITUS
     Dates: start: 201211
  4. KARDEGIC [Concomitant]
     Indication: CARDIOVASCULAR EVENT PROPHYLAXIS
     Dates: start: 201307
  5. ORACILLINE [Concomitant]
     Indication: SPLENECTOMY
     Dates: start: 201211
  6. CREON [Concomitant]
     Indication: PANCREATECTOMY
     Dosage: TWICE A DAY
     Dates: start: 201211

REACTIONS (4)
  - Blood creatine phosphokinase increased [Recovered/Resolved]
  - Cerebrovascular accident [Unknown]
  - Myalgia [Recovered/Resolved]
  - Treatment noncompliance [Unknown]
